FAERS Safety Report 5889554-6 (Version None)
Quarter: 2008Q3

REPORT INFORMATION
  Report Type: 
  Country: None (occurrence: None)
  Receive Date: 20080919
  Receipt Date: 20080912
  Transmission Date: 20090109
  Serious: Yes (Other)
  Sender: FDA-Public Use
  Company Number: A0747293A

PATIENT
  Age: 47 Year
  Sex: Male

DRUGS (4)
  1. DEXEDRINE [Suspect]
     Indication: ATTENTION DEFICIT/HYPERACTIVITY DISORDER
     Dosage: 30MG THREE TIMES PER DAY
     Route: 048
     Dates: start: 19930101, end: 20070401
  2. DEXEDRINE [Suspect]
     Dosage: 30MG THREE TIMES PER DAY
     Route: 048
  3. LISINOPRIL [Concomitant]
  4. NEXIUM [Concomitant]

REACTIONS (18)
  - ADVERSE EVENT [None]
  - ALCOHOL POISONING [None]
  - ATRIAL FIBRILLATION [None]
  - BLOOD PRESSURE INCREASED [None]
  - CLAUSTROPHOBIA [None]
  - DRUG INEFFECTIVE [None]
  - HEAD INJURY [None]
  - HEART RATE INCREASED [None]
  - IMPAIRED DRIVING ABILITY [None]
  - IMPAIRED WORK ABILITY [None]
  - LOSS OF EMPLOYMENT [None]
  - MEMORY IMPAIRMENT [None]
  - PANIC ATTACK [None]
  - ROAD TRAFFIC ACCIDENT [None]
  - SHOCK [None]
  - SKIN LACERATION [None]
  - SPEECH DISORDER [None]
  - THERAPEUTIC RESPONSE DECREASED [None]
